FAERS Safety Report 6923067-5 (Version None)
Quarter: 2010Q3

REPORT INFORMATION
  Report Type: 
  Country: None (occurrence: None)
  Receive Date: 20100813
  Receipt Date: 20100806
  Transmission Date: 20110219
  Serious: Yes (Other)
  Sender: FDA-Public Use
  Company Number: US-PFIZER INC-2010100068

PATIENT
  Sex: Male
  Weight: 81.179 kg

DRUGS (3)
  1. SERTRALINE HYDROCHLORIDE [Suspect]
     Indication: AGGRESSION
     Dosage: 100MG IN THE MORNING, 200MG AT NIGHT
     Dates: start: 20100701
  2. DEPAKOTE [Suspect]
     Indication: CONVULSION
     Dosage: 500 MG, UNK
     Dates: start: 20040101
  3. LAMICTAL [Suspect]
     Indication: CONVULSION
     Dosage: UNK, 2X/DAY
     Dates: start: 20100301

REACTIONS (4)
  - DIZZINESS [None]
  - FEELING ABNORMAL [None]
  - SOMNOLENCE [None]
  - TONGUE BLISTERING [None]
